FAERS Safety Report 4511259-4 (Version None)
Quarter: 2004Q4

REPORT INFORMATION
  Report Type: 
  Country: None (occurrence: None)
  Receive Date: 20041122
  Receipt Date: 20041122
  Transmission Date: 20050328
  Serious: Yes (Hospitalization)
  Sender: FDA-Public Use
  Company Number: None

PATIENT
  Age: 80 Year
  Sex: Male

DRUGS (7)
  1. CELEBREX [Suspect]
     Indication: OSTEOARTHRITIS
     Dosage: 200MG  DAILY ORAL
     Route: 048
     Dates: start: 20040801, end: 20041020
  2. PLAVIX [Suspect]
     Indication: PERIPHERAL VASCULAR DISORDER
     Dosage: 75MG  DAILY ORAL
     Route: 048
     Dates: start: 20030101, end: 20041020
  3. ASPIRIN [Concomitant]
  4. ALEVE [Concomitant]
  5. COREG [Concomitant]
  6. HYDROXYZINE [Concomitant]
  7. PRAVACHOL [Concomitant]

REACTIONS (1)
  - GASTROINTESTINAL HAEMORRHAGE [None]
